FAERS Safety Report 8190087-5 (Version None)
Quarter: 2012Q1

REPORT INFORMATION
  Report Type: 
  Country: None (occurrence: None)
  Receive Date: 20120307
  Receipt Date: 20120307
  Transmission Date: 20120608
  Serious: Yes (Other)
  Sender: FDA-Public Use
  Company Number: None

PATIENT
  Sex: Male
  Weight: 70.306 kg

DRUGS (9)
  1. POT CL MICRO [Concomitant]
     Route: 048
  2. LOVASTATIN [Suspect]
     Indication: BLOOD CHOLESTEROL INCREASED
  3. LOVASTATIN [Suspect]
     Indication: BLOOD TRIGLYCERIDES INCREASED
  4. BENAZEP/HCTZ 20-25MG [Concomitant]
     Route: 048
  5. SERTRALINE HYDROCHLORIDE [Concomitant]
     Route: 048
  6. XTRA STRENGTH ACETOMINOPHEN [Concomitant]
     Route: 048
  7. FLUTICASONE PROPIONATE [Concomitant]
     Route: 048
  8. NAPROXEN [Concomitant]
     Route: 048
  9. VITAMIN D [Concomitant]

REACTIONS (5)
  - FEELING ABNORMAL [None]
  - HEADACHE [None]
  - MYALGIA [None]
  - BLOOD URIC ACID INCREASED [None]
  - MEMORY IMPAIRMENT [None]
